FAERS Safety Report 25243044 (Version 3)
Quarter: 2025Q3

REPORT INFORMATION
  Report Type: Spontaneous
  Country: US (occurrence: US)
  Receive Date: 20250428
  Receipt Date: 20250806
  Transmission Date: 20251021
  Serious: Yes (Death)
  Sender: ASTELLAS
  Company Number: US-ASTELLAS-2025-AER-005059

PATIENT
  Age: 64 Year
  Sex: Female

DRUGS (1)
  1. PADCEV [Suspect]
     Active Substance: ENFORTUMAB VEDOTIN-EJFV
     Indication: Product used for unknown indication
     Route: 042

REACTIONS (1)
  - Death [Fatal]
